FAERS Safety Report 5220563-6 (Version None)
Quarter: 2007Q1

REPORT INFORMATION
  Report Type: 
  Country: None (occurrence: None)
  Receive Date: 20070126
  Receipt Date: 20070116
  Transmission Date: 20070707
  Serious: Yes (Hospitalization)
  Sender: FDA-Public Use
  Company Number: JP-BAYER-200710034BYL

PATIENT
  Age: 75 Year
  Sex: Male

DRUGS (6)
  1. ASPIRIN [Suspect]
     Indication: DEEP VEIN THROMBOSIS
     Dosage: TOTAL DAILY DOSE: 100 MG  UNIT DOSE: 100 MG
     Route: 048
     Dates: start: 20061001, end: 20070112
  2. NEODOPASOL [Suspect]
     Route: 048
  3. PERMAX [Suspect]
     Route: 048
  4. SELBEX [Concomitant]
     Route: 048
  5. GASMOTIN [Concomitant]
     Route: 048
  6. MAGLAX [Concomitant]
     Route: 048

REACTIONS (6)
  - ANAEMIA [None]
  - BRADYCARDIA [None]
  - FALL [None]
  - HAEMATOMA [None]
  - PLATELET COUNT DECREASED [None]
  - WHITE BLOOD CELL COUNT DECREASED [None]
